FAERS Safety Report 4382643-7 (Version None)
Quarter: 2004Q2

REPORT INFORMATION
  Report Type: 
  Country: None (occurrence: None)
  Receive Date: 20040617
  Receipt Date: 20040609
  Transmission Date: 20050107
  Serious: Yes (Other)
  Sender: FDA-Public Use
  Company Number: 8006461

PATIENT
  Age: 32 Year
  Sex: Female

DRUGS (7)
  1. KEPPRA [Suspect]
     Indication: EPILEPSY
     Dosage: 3.5 G PO
     Route: 048
     Dates: start: 20020122, end: 20021101
  2. KEPPRA [Suspect]
     Indication: EPILEPSY
     Dates: start: 20030501
  3. CARBAMAZEPINE [Concomitant]
  4. ACETAZOLAMIDE [Concomitant]
  5. LAMOTRIGINE [Concomitant]
  6. CLOBAZAM [Concomitant]
  7. ALBUTEROL SULFATE [Concomitant]

REACTIONS (5)
  - AGGRESSION [None]
  - ANXIETY [None]
  - CONFUSIONAL STATE [None]
  - IRRITABILITY [None]
  - PARANOIA [None]
